FAERS Safety Report 7206230-8 (Version None)
Quarter: 2010Q4

REPORT INFORMATION
  Report Type: 
  Country: None (occurrence: None)
  Receive Date: 20101228
  Receipt Date: 20101228
  Transmission Date: 20110411
  Serious: Yes (Other)
  Sender: FDA-Public Use
  Company Number: None

PATIENT
  Age: 67 Year
  Sex: Male
  Weight: 76.6579 kg

DRUGS (2)
  1. TAMSULOSIN HCL [Suspect]
     Indication: BENIGN PROSTATIC HYPERPLASIA
     Dosage: ONE DAILY PO
     Route: 048
     Dates: start: 20100315, end: 20100904
  2. FLOMAX [Suspect]

REACTIONS (7)
  - DIZZINESS [None]
  - DYSURIA [None]
  - INCORRECT DOSE ADMINISTERED [None]
  - PRODUCT SUBSTITUTION ISSUE [None]
  - PROSTATE INFECTION [None]
  - THERAPEUTIC PRODUCT INEFFECTIVE [None]
  - URINARY RETENTION [None]
